FAERS Safety Report 4598599-8 (Version None)
Quarter: 2005Q1

REPORT INFORMATION
  Report Type: 
  Country: None (occurrence: None)
  Receive Date: 20050304
  Receipt Date: 20050221
  Transmission Date: 20050727
  Serious: Yes (Other)
  Sender: FDA-Public Use
  Company Number: GB-ROCHE-396296

PATIENT
  Age: 68 Year
  Sex: Male
  Weight: 69.8 kg

DRUGS (8)
  1. TAMIFLU [Suspect]
     Indication: INFLUENZA
     Route: 048
     Dates: start: 20050126, end: 20050131
  2. ASPIRIN [Concomitant]
     Route: 048
  3. CITALOPRAM [Concomitant]
     Route: 048
  4. CLOPIDOGREL [Concomitant]
     Route: 048
  5. RANITIDINE [Concomitant]
     Route: 048
  6. SENNA [Concomitant]
     Route: 048
  7. SIMVASTATIN [Concomitant]
     Route: 048
  8. TAMSULOSIN [Concomitant]
     Route: 048

REACTIONS (5)
  - CHROMATURIA [None]
  - HAEMATURIA [None]
  - PROTEINURIA [None]
  - URINE ODOUR ABNORMAL [None]
  - VOMITING [None]
